FAERS Safety Report 24795792 (Version 2)
Quarter: 2025Q1

REPORT INFORMATION
  Report Type: Report from Study
  Country: US (occurrence: US)
  Receive Date: 20250101
  Receipt Date: 20250204
  Transmission Date: 20250409
  Serious: Yes (Death, Other)
  Sender: ACADIA PHARMACEUTICALS
  Company Number: US-ACADIA PHARMACEUTICALS INC.-ACA-2024-PIM-008913

PATIENT
  Sex: Male

DRUGS (15)
  1. NUPLAZID [Suspect]
     Active Substance: PIMAVANSERIN TARTRATE
     Indication: Parkinson^s disease
     Dosage: 34 MILLIGRAM, QD
     Route: 048
     Dates: start: 20220422
  2. TYLENOL [Concomitant]
     Active Substance: ACETAMINOPHEN
  3. FLUDROCORTISONE [Concomitant]
     Active Substance: FLUDROCORTISONE
  4. PYRIDOSTIGMINE [Concomitant]
     Active Substance: PYRIDOSTIGMINE
  5. FESOTERODINE [Concomitant]
     Active Substance: FESOTERODINE
  6. MIDODRINE [Concomitant]
     Active Substance: MIDODRINE
  7. GEMTESA [Concomitant]
     Active Substance: VIBEGRON
  8. MEMANTINE [Concomitant]
     Active Substance: MEMANTINE
  9. INGREZZA [Concomitant]
     Active Substance: VALBENAZINE
  10. QUETIAPINE [Concomitant]
     Active Substance: QUETIAPINE
  11. QUETIAPINE [Concomitant]
     Active Substance: QUETIAPINE
  12. MEMANTINE [Concomitant]
     Active Substance: MEMANTINE
  13. TAMSULOSIN [Concomitant]
     Active Substance: TAMSULOSIN
  14. FINASTERIDE [Concomitant]
     Active Substance: FINASTERIDE
  15. CARBIDOPA\LEVODOPA [Concomitant]
     Active Substance: CARBIDOPA\LEVODOPA

REACTIONS (2)
  - Dementia with Lewy bodies [Fatal]
  - Parkinson^s disease [Fatal]
